FAERS Safety Report 4950948-4 (Version None)
Quarter: 2006Q1

REPORT INFORMATION
  Report Type: 
  Country: None (occurrence: None)
  Receive Date: 20060316
  Receipt Date: 20060302
  Transmission Date: 20060701
  Serious: Yes (Other)
  Sender: FDA-Public Use
  Company Number: PAR_0542_2006

PATIENT
  Age: 28 Year
  Sex: Female

DRUGS (3)
  1. CAPOTEN [Suspect]
     Dosage: DF PO
     Route: 048
  2. AMITRIPTYLINE [Suspect]
     Dosage: DF PO
     Route: 048
  3. NAOH (SODIUM HYDROXIDE) [Suspect]
     Dosage: DF   PO
     Route: 048

REACTIONS (9)
  - ABDOMINAL PAIN [None]
  - ARRHYTHMIA [None]
  - BURNING SENSATION MUCOSAL [None]
  - GLOSSODYNIA [None]
  - HYPOTENSION [None]
  - SHOCK [None]
  - SUICIDAL IDEATION [None]
  - SUICIDE ATTEMPT [None]
  - VOMITING [None]
